FAERS Safety Report 17065473 (Version 1)
Quarter: 2019Q4

REPORT INFORMATION
  Report Type: Spontaneous
  Country: US (occurrence: US)
  Receive Date: 20191122
  Receipt Date: 20191122
  Transmission Date: 20200122
  Serious: Yes (Other)
  Sender: FDA-Public Use
  Company Number: None

PATIENT
  Age: 87 Year
  Sex: Female

DRUGS (12)
  1. COLACE [Concomitant]
     Active Substance: DOCUSATE SODIUM
  2. LETROZOLE 2.5 MG TABLET [Concomitant]
     Active Substance: LETROZOLE
  3. ASPIRIN 81 [Concomitant]
     Active Substance: ASPIRIN
  4. METOPROLOL SUCCINATE ER [Concomitant]
     Active Substance: METOPROLOL SUCCINATE
  5. VITAMIN D3 [Concomitant]
     Active Substance: CHOLECALCIFEROL
  6. IBRANCE [Suspect]
     Active Substance: PALBOCICLIB
     Indication: BREAST CANCER
     Route: 048
     Dates: start: 20190709
  7. CENTRUM SILVER 50+WOMEN [Concomitant]
  8. LOSARTAN POTASSIUM. [Concomitant]
     Active Substance: LOSARTAN POTASSIUM
  9. POLYETHYLENE GLYCOL 1000 [Concomitant]
     Active Substance: POLYETHYLENE GLYCOL 1000
  10. PRAVASTATIN SODIUM. [Concomitant]
     Active Substance: PRAVASTATIN SODIUM
  11. CARAFATE [Concomitant]
     Active Substance: SUCRALFATE
  12. PANTOPRAZOLE SODIUM. [Concomitant]
     Active Substance: PANTOPRAZOLE SODIUM

REACTIONS (10)
  - Back pain [None]
  - Migraine [None]
  - Wheezing [None]
  - Asthenia [None]
  - Insomnia [None]
  - Swelling face [None]
  - Stomatitis [None]
  - Weight decreased [None]
  - Night sweats [None]
  - Lip dry [None]

NARRATIVE: CASE EVENT DATE: 20191122
